FAERS Safety Report 8759609 (Version 2)
Quarter: 2012Q4

REPORT INFORMATION
  Report Type: 
  Country: US (occurrence: US)
  Receive Date: 20120829
  Receipt Date: 20120910
  Transmission Date: 20130627
  Serious: Yes (Hospitalization, Other)
  Sender: FDA-Public Use
  Company Number: US-009507513-2011SP030646

PATIENT

DRUGS (3)
  1. NUVARING [Suspect]
     Indication: CONTRACEPTION
     Dates: start: 200808, end: 200909
  2. NUVARING [Suspect]
     Dates: start: 200711, end: 200712
  3. COUMADIN [Suspect]
     Indication: THROMBOSIS
     Dates: start: 200809

REACTIONS (12)
  - Pulmonary embolism [Unknown]
  - Anxiety [Unknown]
  - Skin disorder [Unknown]
  - Atrial flutter [Unknown]
  - Ovarian cyst [Unknown]
  - Pneumonia [Unknown]
  - Groin pain [Unknown]
  - Rash [Unknown]
  - Pleural effusion [Unknown]
  - Muscle strain [Unknown]
  - Patellofemoral pain syndrome [Unknown]
  - Joint effusion [Unknown]
